FAERS Safety Report 9235202 (Version 1)
Quarter: 2013Q2

REPORT INFORMATION
  Report Type: Spontaneous
  Country: US (occurrence: US)
  Receive Date: 20130417
  Receipt Date: 20130417
  Transmission Date: 20140414
  Serious: Yes (Hospitalization, Other)
  Sender: FDA-Public Use
  Company Number: US-AMGEN-USASP2013025095

PATIENT
  Age: 58 Year
  Sex: Male

DRUGS (1)
  1. ENBREL [Suspect]
     Indication: RHEUMATOID ARTHRITIS
     Dosage: 50 MG, QWK
     Dates: start: 20080606

REACTIONS (14)
  - Diverticulitis [Recovered/Resolved]
  - Nerve compression [Recovered/Resolved]
  - Peripheral nerve operation [Recovered/Resolved]
  - Inguinal hernia [Recovered/Resolved]
  - Device breakage [Not Recovered/Not Resolved]
  - Tooth loss [Not Recovered/Not Resolved]
  - Injection related reaction [Recovered/Resolved]
  - Back pain [Recovered/Resolved]
  - Renal pain [Recovered/Resolved]
  - Musculoskeletal chest pain [Recovered/Resolved]
  - Spinal pain [Recovered/Resolved]
  - Drug effect incomplete [Not Recovered/Not Resolved]
  - Joint stiffness [Not Recovered/Not Resolved]
  - Joint swelling [Not Recovered/Not Resolved]
